FAERS Safety Report 5726055-X (Version None)
Quarter: 2008Q2

REPORT INFORMATION
  Report Type: 
  Country: None (occurrence: None)
  Receive Date: 20080501
  Receipt Date: 20080501
  Transmission Date: 20081010
  Serious: Yes (Other)
  Sender: FDA-Public Use
  Company Number: None

PATIENT
  Age: 8 Year
  Sex: Female
  Weight: 23.587 kg

DRUGS (2)
  1. SINGULAIR [Suspect]
     Indication: ASTHMA
     Dosage: ONE TABLET DAILY PO
     Route: 048
     Dates: start: 20040801, end: 20080501
  2. SINGULAIR [Suspect]
     Indication: SEASONAL ALLERGY
     Dosage: ONE TABLET DAILY PO
     Route: 048
     Dates: start: 20040801, end: 20080501

REACTIONS (5)
  - ABNORMAL BEHAVIOUR [None]
  - ANXIETY [None]
  - DEPRESSION [None]
  - FEELING ABNORMAL [None]
  - SELF ESTEEM DECREASED [None]
